FAERS Safety Report 7540111-5 (Version None)
Quarter: 2011Q2

REPORT INFORMATION
  Report Type: 
  Country: None (occurrence: None)
  Receive Date: 20110610
  Receipt Date: 20110602
  Transmission Date: 20111010
  Serious: Yes (Hospitalization)
  Sender: FDA-Public Use
  Company Number: US-ASTRAZENECA-2011SE33931

PATIENT
  Age: 62 Year
  Sex: Female

DRUGS (2)
  1. BLOOD PRESSURE MEDICATION [Concomitant]
  2. CRESTOR [Suspect]
     Route: 048
     Dates: end: 20110101

REACTIONS (2)
  - RHABDOMYOLYSIS [None]
  - HEPATIC ENZYME INCREASED [None]
